FAERS Safety Report 9359824 (Version 11)
Quarter: 2015Q3

REPORT INFORMATION
  Report Type: Report from Study
  Country: US (occurrence: US)
  Receive Date: 20130621
  Receipt Date: 20150922
  Transmission Date: 20151125
  Serious: Yes (Hospitalization)
  Sender: FDA-Public Use
  Company Number: US-ROCHE-1237978

PATIENT
  Age: 62 Year
  Sex: Female
  Weight: 56.8 kg

DRUGS (13)
  1. ATIVAN [Concomitant]
     Active Substance: LORAZEPAM
     Route: 065
     Dates: start: 2003
  2. POTASSIUM GUAIACOLSULFONATE [Concomitant]
     Active Substance: POTASSIUM GUAIACOLSULFONATE
     Route: 065
  3. TAXOTERE [Suspect]
     Active Substance: DOCETAXEL
     Indication: BREAST CANCER
     Dosage: DATE OF LAST DOSE PRIOR TO SAE:26/MAR/2013
     Route: 042
     Dates: start: 20130212, end: 20130410
  4. DILTIAZEM [Concomitant]
     Active Substance: DILTIAZEM
     Route: 065
     Dates: start: 2003
  5. MEGACE ES [Concomitant]
     Active Substance: MEGESTROL ACETATE
     Dosage: DOSE: 625 MG/ML
     Route: 065
     Dates: start: 20130305
  6. ULTRAM [Concomitant]
     Active Substance: TRAMADOL HYDROCHLORIDE
     Route: 065
     Dates: start: 20130212
  7. LOPERAMIDE [Concomitant]
     Active Substance: LOPERAMIDE
  8. TRASTUZUMAB [Suspect]
     Active Substance: TRASTUZUMAB
     Indication: BREAST CANCER
     Dosage: DATE OF LAST DOSE PRIOR TO SAE: 26/MAR/2013
     Route: 042
     Dates: start: 20130212, end: 20130410
  9. NEXIUM [Concomitant]
     Active Substance: ESOMEPRAZOLE MAGNESIUM
     Route: 065
     Dates: start: 20130324
  10. CARAFATE [Concomitant]
     Active Substance: SUCRALFATE
     Dosage: DOSE: 110 MG/ML
     Route: 065
     Dates: start: 20130409
  11. OPIUM TINCTURE [Concomitant]
     Active Substance: OPIUM TINCTURE
  12. CARBOPLATIN. [Suspect]
     Active Substance: CARBOPLATIN
     Indication: BREAST CANCER
     Dosage: DOSE: 6 AUC, DATE OF LAST DOSE PRIOR TO SAE: 26/MAR/2013
     Route: 042
     Dates: start: 20130212, end: 20130410
  13. XANAX [Concomitant]
     Active Substance: ALPRAZOLAM
     Route: 065
     Dates: start: 2003

REACTIONS (6)
  - Vomiting [Not Recovered/Not Resolved]
  - Gastroenteritis [Recovered/Resolved]
  - Colitis [Recovered/Resolved]
  - Gastroenteritis radiation [Recovered/Resolved]
  - Clostridium difficile colitis [Recovered/Resolved]
  - Small intestinal obstruction [Recovered/Resolved]

NARRATIVE: CASE EVENT DATE: 20130410
